FAERS Safety Report 4288864-6 (Version None)
Quarter: 2004Q1

REPORT INFORMATION
  Report Type: 
  Country: None (occurrence: None)
  Receive Date: 20040203
  Receipt Date: 20031029
  Transmission Date: 20041129
  Serious: Yes (Hospitalization)
  Sender: FDA-Public Use
  Company Number: 200327467BWH

PATIENT
  Age: 91 Year
  Sex: Female
  Weight: 54.4316 kg

DRUGS (6)
  1. AVELOX [Suspect]
     Indication: UPPER RESPIRATORY TRACT INFECTION
     Dosage: 400 MG, QD, ORAL
     Route: 048
     Dates: start: 20030731, end: 20030803
  2. ACIPHEX [Concomitant]
  3. CATAPRES [Concomitant]
  4. HYDROCHLOROTHIAZIDE [Concomitant]
  5. EVISTA [Concomitant]
  6. ENDURON [Concomitant]

REACTIONS (3)
  - ABDOMINAL PAIN [None]
  - CONSTIPATION [None]
  - VOMITING [None]
